FAERS Safety Report 8731333 (Version 3)
Quarter: 2014Q2

REPORT INFORMATION
  Report Type: Spontaneous
  Country: US (occurrence: US)
  Receive Date: 20120820
  Receipt Date: 20140605
  Transmission Date: 20141212
  Serious: Yes (Hospitalization)
  Sender: FDA-Public Use
  Company Number: US-BAYER-2012-082385

PATIENT
  Age: 33 Year
  Sex: Female
  Weight: 61.22 kg

DRUGS (9)
  1. YASMIN [Suspect]
     Indication: CONTRACEPTION
     Dosage: UNK
     Dates: start: 201102, end: 20120416
  2. YAZ [Suspect]
     Indication: CONTRACEPTION
     Dosage: UNK
     Dates: start: 201102, end: 201204
  3. MOTRIN [Concomitant]
     Dosage: 600 MG, UNK
     Route: 048
     Dates: start: 20120106
  4. ZANAFLEX [Concomitant]
     Dosage: 4 MG, UNK
     Route: 048
     Dates: start: 20120106
  5. TORADOL [Concomitant]
     Dosage: 60 MG, UNK
     Route: 030
     Dates: start: 20120106
  6. VICODIN [Concomitant]
  7. IRON [Concomitant]
  8. PRENATAL VITAMINS [VIT C,B5,B12,D2,B3,B6,RETINOL PALMIT,B2,B1 MONO [Concomitant]
  9. AMOXICILLIN [Concomitant]
     Dosage: UNK
     Dates: start: 20120224

REACTIONS (5)
  - Pulmonary thrombosis [None]
  - Pulmonary embolism [None]
  - Injury [None]
  - Dyspnoea [None]
  - Chest pain [None]
